FAERS Safety Report 8240184-0 (Version None)
Quarter: 2012Q1

REPORT INFORMATION
  Report Type: 
  Country: None (occurrence: None)
  Receive Date: 20120328
  Receipt Date: 20110712
  Transmission Date: 20120608
  Serious: Yes (Hospitalization)
  Sender: FDA-Public Use
  Company Number: US-PFIZER INC-K201100816

PATIENT
  Sex: Male
  Weight: 81.633 kg

DRUGS (5)
  1. ASPIRIN [Concomitant]
     Dosage: UNK
  2. SKELAXIN [Suspect]
     Indication: BACK PAIN
     Dosage: 100 MG, 1X/DAY
     Route: 048
     Dates: start: 20110704, end: 20110708
  3. ATENOLOL [Concomitant]
     Dosage: UNK
  4. LIPITOR [Concomitant]
     Indication: BLOOD CHOLESTEROL INCREASED
     Dosage: UNK
  5. CARDURA [Concomitant]
     Dosage: UNK

REACTIONS (4)
  - HYPERSENSITIVITY [None]
  - URTICARIA [None]
  - DYSPNOEA [None]
  - LIP SWELLING [None]
